FAERS Safety Report 4520652-5 (Version None)
Quarter: 2004Q4

REPORT INFORMATION
  Report Type: 
  Country: None (occurrence: None)
  Receive Date: 20041203
  Receipt Date: 20041124
  Transmission Date: 20050328
  Serious: No
  Sender: FDA-Public Use
  Company Number: TPA2004A01170

PATIENT
  Age: 57 Year
  Sex: Female
  Weight: 81.6475 kg

DRUGS (9)
  1. ACTOS [Suspect]
     Indication: DIABETES MELLITUS NON-INSULIN-DEPENDENT
     Dosage: 45 MG, 1 IN 1 D, PER ORAL
     Route: 048
     Dates: start: 20040804
  2. METFORMIN (METHFORMIN) (500 MILLIGRAM) [Concomitant]
  3. GLUCOTROL (GLIPIZIDE) (10 MILLIGRAM) [Concomitant]
  4. PRINIVIL (LISINOPRIL) (40 MILLIGRAM) [Concomitant]
  5. COZAAR (LOSARTAN POTASSIUM ) (20 MILLIGRAM) [Concomitant]
  6. HYDROCHLOROTHIAZIDE (HYDROCHLOROTHIAZIDE) (25 MILLIGRAM) [Concomitant]
  7. VITAMIN C(ASCORBIC ACID) (1000 MILLIGRMA) [Concomitant]
  8. CALCIUM WITH VITAMIN D(CALCIUM WITH VITAMIN D) (500 MILLIGRAM) [Concomitant]
  9. VITAMIN E (TOCOPHEROL) (1000 MILIGRAM) [Concomitant]

REACTIONS (1)
  - BREAST CANCER IN SITU [None]
